FAERS Safety Report 9177399 (Version 1)
Quarter: 2013Q1

REPORT INFORMATION
  Report Type: Spontaneous
  Country: US (occurrence: US)
  Receive Date: 20130321
  Receipt Date: 20130321
  Transmission Date: 20140127
  Serious: No
  Sender: FDA-Public Use
  Company Number: US-MYLANLABS-2012S1003911

PATIENT
  Age: 5 Year
  Sex: Female
  Weight: 18.14 kg

DRUGS (1)
  1. TAMOXIFEN CITRATE [Suspect]
     Route: 048
     Dates: end: 201202

REACTIONS (3)
  - Drug dispensing error [Recovered/Resolved]
  - Wrong drug administered [Recovered/Resolved]
  - No adverse event [Recovered/Resolved]
